FAERS Safety Report 5045283-2 (Version None)
Quarter: 2006Q3

REPORT INFORMATION
  Report Type: 
  Country: None (occurrence: None)
  Receive Date: 20060707
  Receipt Date: 20060623
  Transmission Date: 20061208
  Serious: Yes (Hospitalization)
  Sender: FDA-Public Use
  Company Number: CZ-BRISTOL-MYERS SQUIBB COMPANY-13423215

PATIENT
  Age: 56 Year
  Sex: Female

DRUGS (6)
  1. IXABEPILONE [Suspect]
     Indication: BREAST CANCER
     Route: 042
     Dates: start: 20060613, end: 20060613
  2. CAPECITABINE [Suspect]
     Indication: BREAST CANCER
     Route: 048
     Dates: start: 20060613, end: 20060620
  3. BONEFOS [Concomitant]
     Dates: start: 20060425
  4. ZOREM [Concomitant]
     Dates: start: 20051101
  5. SANDONORM [Concomitant]
     Dates: start: 19870101
  6. ENAP [Concomitant]
     Dates: start: 19870101

REACTIONS (3)
  - FATIGUE [None]
  - RASH [None]
  - SKIN EXFOLIATION [None]
